FAERS Safety Report 7166443-0 (Version None)
Quarter: 2010Q4

REPORT INFORMATION
  Report Type: 
  Country: None (occurrence: None)
  Receive Date: 20101216
  Receipt Date: 20101203
  Transmission Date: 20110411
  Serious: Yes (Other)
  Sender: FDA-Public Use
  Company Number: PHHY2010CA82037

PATIENT

DRUGS (7)
  1. ALISKIREN ALI+ [Suspect]
     Dosage: EVERY DAY
  2. INSULIN [Concomitant]
     Dosage: UNK
  3. METFORMIN HCL [Concomitant]
     Dosage: UNK
  4. LIPITOR [Concomitant]
     Dosage: UNK
  5. LASIX [Concomitant]
     Dosage: UNK
  6. PLAVIX [Concomitant]
     Dosage: UNK
  7. FLOMAX [Concomitant]
     Dosage: UNK

REACTIONS (2)
  - GASTRIC CANCER [None]
  - LIVER OPERATION [None]
